FAERS Safety Report 13019883 (Version 1)
Quarter: 2016Q4

REPORT INFORMATION
  Report Type: Spontaneous
  Country: US (occurrence: US)
  Receive Date: 20161212
  Receipt Date: 20161212
  Transmission Date: 20170207
  Serious: No
  Sender: FDA-Public Use
  Company Number: US-ROCHE-1769089

PATIENT
  Age: 74 Year
  Sex: Female

DRUGS (15)
  1. BACTRIM [Concomitant]
     Active Substance: SULFAMETHOXAZOLE\TRIMETHOPRIM
     Route: 065
  2. LISINOPRIL. [Concomitant]
     Active Substance: LISINOPRIL
  3. METHOTREXATE. [Concomitant]
     Active Substance: METHOTREXATE
  4. ACTEMRA [Suspect]
     Active Substance: TOCILIZUMAB
     Indication: RHEUMATOID ARTHRITIS
     Route: 058
  5. PREDNISONE. [Concomitant]
     Active Substance: PREDNISONE
  6. CALCIUM CARBONATE. [Concomitant]
     Active Substance: CALCIUM CARBONATE
  7. BIOTIN [Concomitant]
     Active Substance: BIOTIN
  8. PROBIOTIC ACIDOPHILUS [Concomitant]
     Active Substance: LACTOBACILLUS ACIDOPHILUS
  9. BONIVA [Suspect]
     Active Substance: IBANDRONATE SODIUM
     Indication: PRODUCT USED FOR UNKNOWN INDICATION
     Route: 065
  10. STRESS B COMPLEX [Concomitant]
     Dosage: 500
     Route: 065
  11. FLONASE (UNITED STATES) [Concomitant]
  12. ORACEA [Concomitant]
     Active Substance: DOXYCYCLINE
  13. METROGEL [Concomitant]
     Active Substance: METRONIDAZOLE
  14. FOLIC ACID. [Concomitant]
     Active Substance: FOLIC ACID
  15. ZINC GLUCONATE [Concomitant]
     Active Substance: ZINC GLUCONATE

REACTIONS (2)
  - Intervertebral disc protrusion [Unknown]
  - Spinal compression fracture [Unknown]
